FAERS Safety Report 16029666 (Version 5)
Quarter: 2020Q3

REPORT INFORMATION
  Report Type: Other
  Country: CA (occurrence: CA)
  Receive Date: 20190304
  Receipt Date: 20200903
  Transmission Date: 20201102
  Serious: Yes (Hospitalization, Other)
  Sender: FDA-Public Use
  Company Number: CA-ROCHE-2178920

PATIENT
  Age: 51 Year
  Sex: Female
  Weight: 89 kg

DRUGS (16)
  1. METHYLPREDNISOLONE. [Concomitant]
     Active Substance: METHYLPREDNISOLONE
     Indication: PREMEDICATION
     Route: 042
  2. CORTISON [Concomitant]
     Active Substance: CORTISONE ACETATE
  3. PREGABALIN. [Concomitant]
     Active Substance: PREGABALIN
  4. ACETAMINOPHENE [Concomitant]
     Active Substance: ACETAMINOPHEN
  5. TYLENOL [Concomitant]
     Active Substance: ACETAMINOPHEN
     Indication: PREMEDICATION
     Route: 048
     Dates: start: 20190221
  6. CELEBREX [Concomitant]
     Active Substance: CELECOXIB
  7. VITAMIN D3 [Concomitant]
     Active Substance: CHOLECALCIFEROL
  8. COVERSYL [Concomitant]
     Active Substance: PERINDOPRIL
  9. OCREVUS [Suspect]
     Active Substance: OCRELIZUMAB
     Indication: PRIMARY PROGRESSIVE MULTIPLE SCLEROSIS
     Dosage: DAY 1, DAY 15 AND EVERY 6 MONTHS
     Route: 042
     Dates: start: 20180817
  10. OCREVUS [Suspect]
     Active Substance: OCRELIZUMAB
     Route: 042
     Dates: start: 20190221
  11. SOLU?MEDROL [Suspect]
     Active Substance: METHYLPREDNISOLONE SODIUM SUCCINATE
     Indication: PRODUCT USED FOR UNKNOWN INDICATION
     Route: 042
     Dates: start: 20190221
  12. BENADRYL [Concomitant]
     Active Substance: DIPHENHYDRAMINE HYDROCHLORIDE
     Indication: PREMEDICATION
     Route: 048
     Dates: start: 20190221
  13. ASPIRIN. [Concomitant]
     Active Substance: ASPIRIN
  14. CRESTOR [Concomitant]
     Active Substance: ROSUVASTATIN CALCIUM
  15. DIPHENHYDRAMINE. [Concomitant]
     Active Substance: DIPHENHYDRAMINE
  16. FAMPYRA [Concomitant]
     Active Substance: DALFAMPRIDINE

REACTIONS (9)
  - Infusion related reaction [Unknown]
  - Osteoarthritis [Recovering/Resolving]
  - Multiple sclerosis relapse [Recovering/Resolving]
  - Constipation [Unknown]
  - Nasopharyngitis [Recovering/Resolving]
  - Diarrhoea [Unknown]
  - Cholelithiasis [Unknown]
  - Agitation [Recovered/Resolved]
  - Influenza [Recovering/Resolving]

NARRATIVE: CASE EVENT DATE: 20190204
